FAERS Safety Report 13693958 (Version 1)
Quarter: 2017Q2

REPORT INFORMATION
  Report Type: Spontaneous
  Country: US (occurrence: US)
  Receive Date: 20170626
  Receipt Date: 20170626
  Transmission Date: 20170830
  Serious: Yes (Life-Threatening, Hospitalization, Disabling, Other)
  Sender: FDA-Public Use
  Company Number: None

PATIENT
  Age: 45 Year
  Sex: Female
  Weight: 74.25 kg

DRUGS (5)
  1. KLONOPIN [Suspect]
     Active Substance: CLONAZEPAM
     Indication: MUSCLE TWITCHING
     Dosage: ?          OTHER STRENGTH:MG;QUANTITY:1 TABLET(S);?
     Route: 048
     Dates: start: 20130211, end: 20140801
  2. VALIUM [Suspect]
     Active Substance: DIAZEPAM
     Indication: PROPHYLAXIS
     Dosage: ?          OTHER STRENGTH:5MG/5ML LIQUID;QUANTITY:1.5 ML;?
     Route: 048
     Dates: start: 20140801, end: 20170626
  3. DEXCOM CONTINUOUS GLUCOSE MONITOR [Concomitant]
  4. VALIUM [Suspect]
     Active Substance: DIAZEPAM
     Indication: WITHDRAWAL SYNDROME
     Dosage: ?          OTHER STRENGTH:5MG/5ML LIQUID;QUANTITY:1.5 ML;?
     Route: 048
     Dates: start: 20140801, end: 20170626
  5. MEDTRONIC INSULIN PUMP [Concomitant]

REACTIONS (23)
  - Dysgraphia [None]
  - Loss of personal independence in daily activities [None]
  - Diabetes mellitus inadequate control [None]
  - Hypoglycaemia [None]
  - Abasia [None]
  - Suicidal ideation [None]
  - Food allergy [None]
  - Balance disorder [None]
  - Motor dysfunction [None]
  - Akathisia [None]
  - Speech disorder [None]
  - Muscle spasms [None]
  - Drug hypersensitivity [None]
  - Dysphagia [None]
  - Skin burning sensation [None]
  - Anxiety [None]
  - Apparent death [None]
  - Quality of life decreased [None]
  - Hyperglycaemia [None]
  - Gastritis [None]
  - Nausea [None]
  - Bedridden [None]
  - Impaired work ability [None]

NARRATIVE: CASE EVENT DATE: 20130211
